FAERS Safety Report 11364115 (Version 5)
Quarter: 2016Q1

REPORT INFORMATION
  Report Type: Spontaneous
  Country: FR (occurrence: FR)
  Receive Date: 20150811
  Receipt Date: 20160224
  Transmission Date: 20160525
  Serious: Yes (Other)
  Sender: FDA-Public Use
  Company Number: FR-SA-2015SA118844

PATIENT
  Age: 62 Year
  Sex: Male

DRUGS (10)
  1. KARDEGIC [Suspect]
     Active Substance: ASPIRIN LYSINE
     Route: 048
     Dates: start: 20090920
  2. VITAMIN B [Suspect]
     Active Substance: VITAMIN B
     Dosage: B1-B6: 2 MORNING, 1 LUNCH:DAILY DOSE
     Route: 048
     Dates: start: 20150122, end: 20150911
  3. AMIODARONE [Suspect]
     Active Substance: AMIODARONE
     Route: 048
     Dates: start: 20150122, end: 20151014
  4. BISOPROLOL FUMARATE. [Suspect]
     Active Substance: BISOPROLOL FUMARATE
     Indication: CARDIAC FAILURE
     Route: 048
     Dates: start: 20090920
  5. PERINDOPRIL [Suspect]
     Active Substance: PERINDOPRIL
     Route: 048
     Dates: start: 20090920
  6. ALDACTONE [Concomitant]
     Active Substance: SPIRONOLACTONE
     Indication: HYPOKALAEMIA
  7. PREVISCAN [Suspect]
     Active Substance: FLUINDIONE
     Indication: ATRIAL FIBRILLATION
     Route: 048
     Dates: start: 20150122
  8. CRESTOR [Suspect]
     Active Substance: ROSUVASTATIN CALCIUM
     Route: 048
     Dates: start: 20140318, end: 20151014
  9. LASILIX [Suspect]
     Active Substance: FUROSEMIDE
     Indication: CARDIAC FAILURE
     Route: 048
     Dates: start: 20150122
  10. ESOMEPRAZOLE [Suspect]
     Active Substance: ESOMEPRAZOLE
     Route: 048
     Dates: start: 20120920

REACTIONS (1)
  - Hepatocellular injury [Recovering/Resolving]

NARRATIVE: CASE EVENT DATE: 20150619
